FAERS Safety Report 6178027-1 (Version None)
Quarter: 2009Q2

REPORT INFORMATION
  Report Type: 
  Country: None (occurrence: None)
  Receive Date: 20090501
  Receipt Date: 20090501
  Transmission Date: 20091009
  Serious: Yes (Life-Threatening, Hospitalization)
  Sender: FDA-Public Use
  Company Number: None

PATIENT
  Age: 76 Year

DRUGS (1)
  1. HEPARIN [Suspect]

REACTIONS (3)
  - EPISTAXIS [None]
  - PAIN IN EXTREMITY [None]
  - THROMBOCYTOPENIA [None]
